FAERS Safety Report 20335875 (Version 1)
Quarter: 2022Q1

REPORT INFORMATION
  Report Type: Spontaneous
  Country: US (occurrence: None)
  Receive Date: 20220114
  Receipt Date: 20220114
  Transmission Date: 20220424
  Serious: Yes (Disabling, Other)
  Sender: FDA-Public Use
  Company Number: 2022A015098

PATIENT
  Age: 75 Year
  Sex: Female

DRUGS (7)
  1. FASENRA [Suspect]
     Active Substance: BENRALIZUMAB
     Indication: Asthma
     Route: 058
  2. PULMICORT TURBUHALER [Suspect]
     Active Substance: BUDESONIDE
     Indication: Asthma
     Route: 055
  3. DUPIXENT [Suspect]
     Active Substance: DUPILUMAB
     Indication: Asthma
     Route: 065
     Dates: start: 202111, end: 202111
  4. ALEVE [Suspect]
     Active Substance: NAPROXEN SODIUM
     Route: 065
  5. TRELEGY ELLIPTA [Concomitant]
     Active Substance: FLUTICASONE FUROATE\UMECLIDINIUM BROMIDE\VILANTEROL TRIFENATATE
     Route: 065
  6. CORTISONE [Concomitant]
     Active Substance: CORTISONE
     Route: 065
  7. ADVIL [Concomitant]
     Active Substance: IBUPROFEN
     Route: 065

REACTIONS (11)
  - Drug hypersensitivity [Unknown]
  - Gait inability [Recovered/Resolved]
  - Osteoarthritis [Unknown]
  - Pain in extremity [Recovering/Resolving]
  - Pyrexia [Recovered/Resolved]
  - Dyspnoea [Unknown]
  - Skin discolouration [Unknown]
  - Cough [Unknown]
  - Injection site erythema [Recovered/Resolved]
  - Drug ineffective [Unknown]
  - Intentional product misuse [Unknown]

NARRATIVE: CASE EVENT DATE: 20210101
